FAERS Safety Report 5024485-5 (Version None)
Quarter: 2006Q2

REPORT INFORMATION
  Report Type: 
  Country: None (occurrence: None)
  Receive Date: 20060426
  Receipt Date: 20060217
  Transmission Date: 20061013
  Serious: Yes (Other)
  Sender: FDA-Public Use
  Company Number: 2005151717

PATIENT
  Age: 84 Year
  Sex: Female
  Weight: 58.9676 kg

DRUGS (6)
  1. LYRICA [Suspect]
     Indication: NEUROPATHY PERIPHERAL
     Dosage: (3 IN 1 D), ORAL
     Route: 048
     Dates: start: 20051001, end: 20051001
  2. NORVASC [Concomitant]
  3. SIMVASTATIN [Concomitant]
  4. HYDROCODONE BITARTRATE [Concomitant]
  5. AMBIEN [Concomitant]
  6. SYNTHROID [Concomitant]

REACTIONS (1)
  - BALANCE DISORDER [None]
